FAERS Safety Report 5709380-8 (Version None)
Quarter: 2008Q2

REPORT INFORMATION
  Report Type: 
  Country: None (occurrence: None)
  Receive Date: 20080417
  Receipt Date: 20080417
  Transmission Date: 20081010
  Serious: Yes (Hospitalization, Disabling, Other)
  Sender: FDA-Public Use
  Company Number: None

PATIENT
  Sex: Male
  Weight: 79.3795 kg

DRUGS (1)
  1. TRANSDERM SCOP [Suspect]
     Indication: VERTIGO
     Dosage: 1.5MG 1 PATCH FOR 3 DAYS ON EACH EAR
     Route: 062
     Dates: start: 20080308, end: 20080310

REACTIONS (16)
  - ABASIA [None]
  - ABNORMAL BEHAVIOUR [None]
  - BLOOD PRESSURE FLUCTUATION [None]
  - CONFUSIONAL STATE [None]
  - DELUSION [None]
  - DISORIENTATION [None]
  - DIZZINESS [None]
  - DRY MOUTH [None]
  - DYSURIA [None]
  - FALL [None]
  - FATIGUE [None]
  - HALLUCINATION, VISUAL [None]
  - HEART RATE DECREASED [None]
  - HYPOTENSION [None]
  - LOWER LIMB FRACTURE [None]
  - SOMNOLENCE [None]
